FAERS Safety Report 11878505 (Version 2)
Quarter: 2016Q1

REPORT INFORMATION
  Report Type: Spontaneous
  Country: IT (occurrence: IT)
  Receive Date: 20151230
  Receipt Date: 20160202
  Transmission Date: 20160526
  Serious: Yes (Hospitalization)
  Sender: FDA-Public Use
  Company Number: IT-MYLANLABS-2015M1047364

PATIENT

DRUGS (6)
  1. INSULIN [Suspect]
     Active Substance: INSULIN NOS
     Route: 042
  2. FUROSEMIDE. [Suspect]
     Active Substance: FUROSEMIDE
     Indication: PRODUCT USED FOR UNKNOWN INDICATION
     Route: 065
  3. VALPROATE [Concomitant]
     Active Substance: VALPROATE SODIUM
     Indication: EPILEPSY
     Dosage: UP TO 60 MG/KG PER DAY
     Route: 065
  4. GLIBENCLAMIDE [Suspect]
     Active Substance: GLYBURIDE
     Indication: PRODUCT USED FOR UNKNOWN INDICATION
     Route: 065
  5. INSULIN [Suspect]
     Active Substance: INSULIN NOS
     Indication: PRODUCT USED FOR UNKNOWN INDICATION
     Route: 058
  6. PROGESTERONE. [Suspect]
     Active Substance: PROGESTERONE
     Indication: PRODUCT USED FOR UNKNOWN INDICATION
     Route: 065

REACTIONS (9)
  - Hypokalaemia [Recovered/Resolved]
  - Neurodevelopmental disorder [Unknown]
  - Nephrocalcinosis [Unknown]
  - Metabolic alkalosis [Unknown]
  - Hyperglycaemia [Recovered/Resolved]
  - Hirsutism [Recovering/Resolving]
  - Hypoglycaemia [Recovered/Resolved]
  - Diarrhoea [Unknown]
  - Sepsis [Recovered/Resolved]
